FAERS Safety Report 14574451 (Version 1)
Quarter: 2018Q1

REPORT INFORMATION
  Report Type: Report from Study
  Country: CO (occurrence: CO)
  Receive Date: 20180226
  Receipt Date: 20180226
  Transmission Date: 20180509
  Serious: Yes (Hospitalization, Other)
  Sender: FDA-Public Use
  Company Number: CO-ELI_LILLY_AND_COMPANY-CO201802009878

PATIENT
  Age: 45 Year
  Sex: Male

DRUGS (1)
  1. CETUXIMAB. [Suspect]
     Active Substance: CETUXIMAB
     Indication: COLORECTAL CANCER METASTATIC
     Dosage: 400 MG/M2, 2/M
     Route: 065
     Dates: start: 20170927

REACTIONS (7)
  - Anaemia [Recovering/Resolving]
  - Haematemesis [Recovering/Resolving]
  - Asthenia [Recovering/Resolving]
  - Weight decreased [Unknown]
  - Off label use [Unknown]
  - Pyrexia [Recovering/Resolving]
  - Biliary tract infection [Recovering/Resolving]

NARRATIVE: CASE EVENT DATE: 201802
